FAERS Safety Report 19162512 (Version 1)
Quarter: 2021Q2

REPORT INFORMATION
  Report Type: Spontaneous
  Country: US (occurrence: US)
  Receive Date: 20210420
  Receipt Date: 20210420
  Transmission Date: 20210717
  Serious: Yes (Hospitalization)
  Sender: FDA-Public Use
  Company Number: US-SA-2021SA127719

PATIENT
  Sex: Male

DRUGS (1)
  1. DUPIXENT [Suspect]
     Active Substance: DUPILUMAB
     Indication: DERMATITIS ATOPIC
     Dosage: 300MG
     Route: 058

REACTIONS (5)
  - Head discomfort [Unknown]
  - SARS-CoV-2 test positive [Unknown]
  - Vomiting [Unknown]
  - Dyspnoea [Unknown]
  - COVID-19 [Unknown]
